FAERS Safety Report 8199061-6 (Version None)
Quarter: 2012Q1

REPORT INFORMATION
  Report Type: 
  Country: None (occurrence: None)
  Receive Date: 20120309
  Receipt Date: 20120301
  Transmission Date: 20120608
  Serious: Yes (Other)
  Sender: FDA-Public Use
  Company Number: GB-GLAXOSMITHKLINE-B0785148A

PATIENT
  Age: 19 Year
  Sex: Female

DRUGS (2)
  1. LAMICTAL [Suspect]
     Indication: EPILEPSY
     Dosage: 75MG TWICE PER DAY
     Route: 065
  2. NORDETTE-28 [Concomitant]
     Indication: CONTRACEPTION

REACTIONS (2)
  - METRORRHAGIA [None]
  - CONVULSION [None]
